FAERS Safety Report 11583682 (Version 1)
Quarter: 2015Q4

REPORT INFORMATION
  Report Type: Spontaneous
  Country: US (occurrence: US)
  Receive Date: 20151001
  Receipt Date: 20151001
  Transmission Date: 20160304
  Serious: Yes (Other)
  Sender: FDA-Public Use
  Company Number: US-ASTELLAS-2015US035385

PATIENT
  Age: 74 Year
  Sex: Male

DRUGS (4)
  1. VESICARE [Suspect]
     Active Substance: SOLIFENACIN SUCCINATE
     Indication: POLLAKIURIA
  2. MYRBETRIQ [Suspect]
     Active Substance: MIRABEGRON
     Indication: MICTURITION URGENCY
     Route: 065
  3. VESICARE [Suspect]
     Active Substance: SOLIFENACIN SUCCINATE
     Indication: MICTURITION URGENCY
     Route: 065
     Dates: start: 2015, end: 201509
  4. MYRBETRIQ [Suspect]
     Active Substance: MIRABEGRON
     Indication: POLLAKIURIA

REACTIONS (3)
  - Bladder cancer [Unknown]
  - Bladder dilatation [Unknown]
  - Chromaturia [Unknown]

NARRATIVE: CASE EVENT DATE: 201509
